FAERS Safety Report 12989944 (Version 4)
Quarter: 2017Q1

REPORT INFORMATION
  Report Type: Spontaneous
  Country: US (occurrence: US)
  Receive Date: 20161201
  Receipt Date: 20170206
  Transmission Date: 20170428
  Serious: Yes (Hospitalization)
  Sender: FDA-Public Use
  Company Number: US-PFIZER INC-2016548524

PATIENT
  Age: 55 Year
  Sex: Female
  Weight: 80.73 kg

DRUGS (2)
  1. IBRANCE [Suspect]
     Active Substance: PALBOCICLIB
     Indication: BRAIN NEOPLASM MALIGNANT
     Dosage: 125 MG, CYCLIC (1CAPSULE/DAILY FOR 21/DAYS)
     Route: 048
     Dates: start: 20160911
  2. IBRANCE [Suspect]
     Active Substance: PALBOCICLIB
     Indication: LUNG NEOPLASM MALIGNANT
     Dosage: 125 MG, CYCLIC (1 DAILY FOR 21/DAYS)
     Route: 048

REACTIONS (4)
  - Haemoptysis [Not Recovered/Not Resolved]
  - Eating disorder [Unknown]
  - Product use issue [Unknown]
  - Neoplasm progression [Unknown]
